FAERS Safety Report 5974927-3 (Version None)
Quarter: 2008Q4

REPORT INFORMATION
  Report Type: 
  Country: None (occurrence: None)
  Receive Date: 20081202
  Receipt Date: 20081128
  Transmission Date: 20090506
  Serious: Yes (Death)
  Sender: FDA-Public Use
  Company Number: KR-PFIZER INC-2008100870

PATIENT
  Sex: Male
  Weight: 65.7 kg

DRUGS (5)
  1. VFEND [Suspect]
     Indication: ASPERGILLOSIS
     Route: 042
     Dates: start: 20061023, end: 20061026
  2. VFEND [Suspect]
     Route: 048
     Dates: start: 20061027, end: 20061027
  3. ZAROXOLYN [Concomitant]
     Indication: OEDEMA
     Route: 048
     Dates: start: 20061026, end: 20061027
  4. MEROPENEM [Concomitant]
     Indication: SEPSIS
     Route: 042
     Dates: start: 20061027, end: 20061027
  5. RANITIDINE HYDROCHLORIDE [Concomitant]
     Indication: PROPHYLAXIS AGAINST GASTROINTESTINAL ULCER
     Dosage: DAILY DOSE:100MG-FREQ:BID
     Route: 042
     Dates: start: 20061022

REACTIONS (1)
  - DEATH [None]
